FAERS Safety Report 4886877-4 (Version None)
Quarter: 2006Q1

REPORT INFORMATION
  Report Type: 
  Country: None (occurrence: None)
  Receive Date: 20060119
  Receipt Date: 20060106
  Transmission Date: 20060701
  Serious: Yes (Hospitalization)
  Sender: FDA-Public Use
  Company Number: 2006005450

PATIENT
  Sex: Female

DRUGS (3)
  1. MISOPROSTOL [Suspect]
     Indication: LABOUR INDUCTION
     Dates: start: 20051213, end: 20051214
  2. OXYTOCIN [Suspect]
     Indication: ILL-DEFINED DISORDER
  3. BUPIVACAINE [Concomitant]

REACTIONS (3)
  - CAESAREAN SECTION [None]
  - DRUG EXPOSURE DURING PREGNANCY [None]
  - FOETAL HEART RATE ABNORMAL [None]
